FAERS Safety Report 4435837-6 (Version None)
Quarter: 2004Q3

REPORT INFORMATION
  Report Type: 
  Country: None (occurrence: None)
  Receive Date: 20040826
  Receipt Date: 20040817
  Transmission Date: 20050211
  Serious: Yes (Other)
  Sender: FDA-Public Use
  Company Number: 2004229105US

PATIENT
  Age: 50 Year
  Sex: Female

DRUGS (3)
  1. PROVERA [Suspect]
     Dates: start: 19961014, end: 19970505
  2. PREMPRO [Suspect]
     Dates: start: 19980918, end: 20010401
  3. ESTRADIOL [Suspect]
     Dates: start: 19961014, end: 19980918

REACTIONS (1)
  - BREAST CANCER FEMALE [None]
